FAERS Safety Report 5534527-6 (Version None)
Quarter: 2007Q4

REPORT INFORMATION
  Report Type: 
  Country: None (occurrence: None)
  Receive Date: 20071205
  Receipt Date: 20071130
  Transmission Date: 20080405
  Serious: Yes (Hospitalization, Disabling)
  Sender: FDA-Public Use
  Company Number: US-MERCK-0707USA04747

PATIENT
  Age: 43 Year
  Sex: Female

DRUGS (4)
  1. FOSAMAX [Suspect]
     Indication: RESORPTION BONE INCREASED
     Route: 048
     Dates: start: 20020101, end: 20040501
  2. FOSAMAX [Suspect]
     Route: 048
     Dates: start: 19990101, end: 20020101
  3. CORTICOSTEROIDS (UNSPECIFIED) [Concomitant]
     Route: 065
     Dates: start: 19980301, end: 20070101
  4. ESTROGENS (UNSPECIFIED) [Concomitant]
     Route: 065
     Dates: start: 19980301, end: 20030101

REACTIONS (5)
  - ADRENAL DISORDER [None]
  - APPENDICITIS [None]
  - CHEST PAIN [None]
  - DENTAL CARIES [None]
  - RESORPTION BONE INCREASED [None]
